FAERS Safety Report 17803450 (Version 2)
Quarter: 2020Q2

REPORT INFORMATION
  Report Type: Spontaneous
  Country: GB (occurrence: GB)
  Receive Date: 20200519
  Receipt Date: 20200520
  Transmission Date: 20200714
  Serious: Yes (Other)
  Sender: FDA-Public Use
  Company Number: GB-PFIZER INC-2020196645

PATIENT
  Age: 66 Year
  Sex: Female
  Weight: 73.4 kg

DRUGS (4)
  1. PALBOCICLIB [Suspect]
     Active Substance: PALBOCICLIB
     Dosage: UNK
  2. SIMVASTATIN. [Interacting]
     Active Substance: SIMVASTATIN
     Indication: VITAMIN B12 DEFICIENCY
     Dosage: 40 MG
     Route: 048
  3. UNIROID HC [Concomitant]
     Dosage: 2 DF, DAILY (PERIANAL REGION, APPLY THINLY)
     Route: 061
     Dates: start: 20200305
  4. CYANOCOBALAMIN. [Concomitant]
     Active Substance: CYANOCOBALAMIN
     Indication: VITAMIN B12 DEFICIENCY
     Dosage: 150 UG, 1X/DAY
     Dates: start: 20200203

REACTIONS (2)
  - Rhabdomyolysis [Recovered/Resolved]
  - Drug interaction [Unknown]

NARRATIVE: CASE EVENT DATE: 20200103
